FAERS Safety Report 5122133-7 (Version None)
Quarter: 2006Q4

REPORT INFORMATION
  Report Type: 
  Country: None (occurrence: None)
  Receive Date: 20061006
  Receipt Date: 20060929
  Transmission Date: 20070319
  Serious: Yes (Other)
  Sender: FDA-Public Use
  Company Number: IN-BOEHRINGER INGELHEIM PHARMACEUTICALS, INC.-2006-DE-05197GD

PATIENT
  Age: 9 Year
  Sex: Female

DRUGS (7)
  1. NEVIRAPINE [Suspect]
     Indication: HIV INFECTION
  2. STAVUDINE [Suspect]
     Indication: HIV INFECTION
  3. LAMIVUDINE [Suspect]
     Indication: HIV INFECTION
  4. DIDANOSINE [Suspect]
     Indication: HIV INFECTION
  5. EFAVIRENZ [Suspect]
     Indication: HIV INFECTION
  6. ISONIAZID [Concomitant]
     Indication: TUBERCULOSIS SKIN TEST POSITIVE
  7. RIFAMPICIN [Concomitant]
     Indication: TUBERCULOSIS SKIN TEST POSITIVE

REACTIONS (10)
  - BLOOD LACTIC ACID INCREASED [None]
  - DRUG INEFFECTIVE [None]
  - HEPATOMEGALY [None]
  - HYPERBILIRUBINAEMIA [None]
  - HYPERVENTILATION [None]
  - LACTIC ACIDOSIS [None]
  - METABOLIC ACIDOSIS [None]
  - TUBERCULOSIS SKIN TEST POSITIVE [None]
  - VOMITING [None]
  - WEIGHT DECREASED [None]
